FAERS Safety Report 8762829 (Version 5)
Quarter: 2014Q1

REPORT INFORMATION
  Report Type: Report from Study
  Country: CA (occurrence: CA)
  Receive Date: 20120830
  Receipt Date: 20140221
  Transmission Date: 20141002
  Serious: Yes (Other)
  Sender: FDA-Public Use
  Company Number: CA-ROCHE-1108817

PATIENT
  Age: 44 Year
  Sex: Female
  Weight: 75 kg

DRUGS (6)
  1. ACTEMRA [Suspect]
     Indication: RHEUMATOID ARTHRITIS
     Route: 042
     Dates: start: 20101125
  2. ACTEMRA [Suspect]
     Route: 042
     Dates: start: 20110302, end: 20131114
  3. TYLENOL #2 (CANADA) [Concomitant]
  4. LEUCOVORIN [Concomitant]
  5. TYLENOL #3 (CANADA) [Concomitant]
  6. METHOTREXATE [Concomitant]

REACTIONS (5)
  - Appendicitis [Recovered/Resolved]
  - Gastric haemorrhage [Recovered/Resolved]
  - Drug ineffective [Unknown]
  - Malaise [Unknown]
  - Arthralgia [Not Recovered/Not Resolved]
